FAERS Safety Report 22069421 (Version 1)
Quarter: 2023Q1

REPORT INFORMATION
  Report Type: Spontaneous
  Country: US (occurrence: US)
  Receive Date: 20230307
  Receipt Date: 20230307
  Transmission Date: 20230417
  Serious: No
  Sender: FDA-Public Use
  Company Number: US-AMNEAL PHARMACEUTICALS-2022-AMRX-04201

PATIENT
  Age: 88 Year
  Sex: Male

DRUGS (1)
  1. RYTARY [Suspect]
     Active Substance: CARBIDOPA\LEVODOPA
     Indication: Product used for unknown indication
     Dosage: 61.25MG + 48.75MG, 4 /DAY
     Route: 048
     Dates: start: 20221128, end: 20221130

REACTIONS (1)
  - Head titubation [Recovering/Resolving]

NARRATIVE: CASE EVENT DATE: 20221128
